FAERS Safety Report 8972880 (Version 1)
Quarter: 2012Q4

REPORT INFORMATION
  Report Type: 
  Country: US (occurrence: US)
  Receive Date: 20121218
  Receipt Date: 20121218
  Transmission Date: 20130627
  Serious: Yes (Other)
  Sender: FDA-Public Use
  Company Number: US-BAYER-2012-132127

PATIENT
  Age: 49 Year
  Sex: Female

DRUGS (1)
  1. NATAZIA [Suspect]
     Dosage: UNK

REACTIONS (1)
  - Genital haemorrhage [None]
